FAERS Safety Report 13802085 (Version 1)
Quarter: 2017Q3

REPORT INFORMATION
  Report Type: Spontaneous
  Country: US (occurrence: US)
  Receive Date: 20170727
  Receipt Date: 20170727
  Transmission Date: 20171127
  Serious: Yes (Other)
  Sender: FDA-Public Use
  Company Number: None

PATIENT
  Age: 69 Year
  Sex: Male
  Weight: 76.5 kg

DRUGS (5)
  1. PRALUENT [Suspect]
     Active Substance: ALIROCUMAB
     Indication: BLOOD CHOLESTEROL ABNORMAL
     Dates: start: 20170405, end: 20170717
  2. TAMSULOSIN [Concomitant]
     Active Substance: TAMSULOSIN
  3. CARVEDILOL. [Concomitant]
     Active Substance: CARVEDILOL
  4. NIACINAMIDE [Concomitant]
     Active Substance: NIACINAMIDE
  5. LOSARTAN. [Concomitant]
     Active Substance: LOSARTAN

REACTIONS (4)
  - Feeling abnormal [None]
  - Aggression [None]
  - Insomnia [None]
  - Loss of employment [None]

NARRATIVE: CASE EVENT DATE: 20170405
